FAERS Safety Report 16986421 (Version 2)
Quarter: 2020Q1

REPORT INFORMATION
  Report Type: Spontaneous
  Country: FR (occurrence: FR)
  Receive Date: 20191101
  Receipt Date: 20200204
  Transmission Date: 20200409
  Serious: Yes (Other)
  Sender: FDA-Public Use
  Company Number: FR-US-PROVELL PHARMACEUTICALS LLC-9013244

PATIENT
  Age: 60 Year
  Sex: Female
  Weight: 51 kg

DRUGS (8)
  1. LEVOTHYROX 100 NF [Interacting]
     Active Substance: LEVOTHYROXINE SODIUM
     Dates: start: 20171004, end: 201806
  2. LEVOTHYROX 100 NF [Suspect]
     Active Substance: LEVOTHYROXINE SODIUM
     Indication: POST PROCEDURAL HYPOTHYROIDISM
     Dates: start: 201703
  3. PROGESTAN [Interacting]
     Active Substance: PROGESTERONE
     Indication: PRODUCT USED FOR UNKNOWN INDICATION
  4. SERTRALINE [Interacting]
     Active Substance: SERTRALINE HYDROCHLORIDE
     Indication: PRODUCT USED FOR UNKNOWN INDICATION
  5. DOLIPRANE [Concomitant]
     Active Substance: ACETAMINOPHEN
     Indication: PRODUCT USED FOR UNKNOWN INDICATION
     Dosage: 1000 (UNSPECIFIED UNIT)
  6. LEVOTHYROX 100 NF [Interacting]
     Active Substance: LEVOTHYROXINE SODIUM
     Indication: HYPOTHYROIDISM
     Dosage: MONDAY TO THURSDAY AND LEVOTHYROX 125 SATURDAY AND SUNDAY
     Dates: start: 20170717
  7. NOCTAMIDE [Interacting]
     Active Substance: LORMETAZEPAM
     Indication: PRODUCT USED FOR UNKNOWN INDICATION
  8. OESTRODOSE [Interacting]
     Active Substance: ESTRADIOL
     Indication: PRODUCT USED FOR UNKNOWN INDICATION

REACTIONS (47)
  - Mental impairment [Unknown]
  - Abnormal behaviour [Unknown]
  - Irritability [Unknown]
  - Arthralgia [Not Recovered/Not Resolved]
  - Diarrhoea [Not Recovered/Not Resolved]
  - Agitation [Unknown]
  - Eye irritation [Unknown]
  - Vertigo [Unknown]
  - Drug interaction [Unknown]
  - Pain [Not Recovered/Not Resolved]
  - Decreased interest [Unknown]
  - Blood thyroid stimulating hormone increased [Unknown]
  - Nausea [Not Recovered/Not Resolved]
  - Weight decreased [Recovering/Resolving]
  - Balance disorder [Unknown]
  - Dysstasia [Unknown]
  - Impatience [Unknown]
  - Gait disturbance [Unknown]
  - Gamma-glutamyltransferase increased [Unknown]
  - Dark circles under eyes [Unknown]
  - Headache [Not Recovered/Not Resolved]
  - Blood thyroid stimulating hormone decreased [Unknown]
  - Nervousness [Unknown]
  - Asthenia [Recovering/Resolving]
  - Impaired work ability [Unknown]
  - General physical health deterioration [Recovering/Resolving]
  - Rheumatic disorder [Unknown]
  - Dyspnoea [Unknown]
  - Pallor [Unknown]
  - Hot flush [Not Recovered/Not Resolved]
  - Fatigue [Recovering/Resolving]
  - Sleep disorder [Not Recovered/Not Resolved]
  - Depression [Unknown]
  - Disturbance in attention [Unknown]
  - Apathy [Unknown]
  - Alopecia [Not Recovered/Not Resolved]
  - Gastrointestinal disorder [Unknown]
  - Dizziness [Unknown]
  - Decreased appetite [Recovered/Resolved]
  - Skin discolouration [Unknown]
  - Crying [Unknown]
  - Abdominal pain [Not Recovered/Not Resolved]
  - Migraine [Not Recovered/Not Resolved]
  - Affect lability [Unknown]
  - Anger [Unknown]
  - Feeling of body temperature change [Unknown]
  - Muscle spasms [Unknown]

NARRATIVE: CASE EVENT DATE: 2017
